FAERS Safety Report 7164397-4 (Version None)
Quarter: 2010Q4

REPORT INFORMATION
  Report Type: 
  Country: None (occurrence: None)
  Receive Date: 20101215
  Receipt Date: 20101209
  Transmission Date: 20110411
  Serious: Yes (Hospitalization)
  Sender: FDA-Public Use
  Company Number: ES-CEPHALON-2010005976

PATIENT
  Sex: Male

DRUGS (5)
  1. TREANDA [Suspect]
     Indication: EXTRANODAL MARGINAL ZONE B-CELL LYMPHOMA (MALT TYPE)
     Route: 041
  2. RITUXIMAB [Suspect]
     Indication: EXTRANODAL MARGINAL ZONE B-CELL LYMPHOMA (MALT TYPE)
     Route: 042
  3. RITUXIMAB [Suspect]
     Route: 042
     Dates: start: 20100429
  4. GABAPENTIN [Concomitant]
  5. TRAMADOL HCL [Concomitant]

REACTIONS (2)
  - FEBRILE NEUTROPENIA [None]
  - GASTROENTERITIS SALMONELLA [None]
